FAERS Safety Report 21592216 (Version 1)
Quarter: 2022Q4

REPORT INFORMATION
  Report Type: 
  Country: US (occurrence: US)
  Receive Date: 20221114
  Receipt Date: 20221114
  Transmission Date: 20230113
  Serious: Yes (Hospitalization)
  Sender: FDA-Public Use
  Company Number: US-MannKind Corporation-2022MK000389

PATIENT
  Age: 63 Year
  Sex: Male
  Weight: 95.340 kg

DRUGS (5)
  1. AFREZZA [Suspect]
     Active Substance: INSULIN HUMAN
     Indication: Type 2 diabetes mellitus
     Dosage: 4-12 UNITS (USUALLY 12 UNITS) BEFORE MEALS
     Dates: start: 20220901
  2. Metformin combo [Concomitant]
     Indication: Diabetes mellitus
  3. GLIPIZIDE [Concomitant]
     Active Substance: GLIPIZIDE
     Indication: Diabetes mellitus
  4. LEVEMIR [Concomitant]
     Active Substance: INSULIN DETEMIR
     Indication: Diabetes mellitus
  5. ASPIRIN [Concomitant]
     Active Substance: ASPIRIN

REACTIONS (2)
  - Diabetic foot [Not Recovered/Not Resolved]
  - Cough [Not Recovered/Not Resolved]
